FAERS Safety Report 15116494 (Version 1)
Quarter: 2018Q3

REPORT INFORMATION
  Report Type: Spontaneous
  Country: US (occurrence: US)
  Receive Date: 20180612
  Receipt Date: 20180612
  Transmission Date: 20181010
  Serious: Yes (Hospitalization)
  Sender: FDA-Public Use
  Company Number: None

PATIENT
  Sex: Female

DRUGS (25)
  1. EPHEDRA [Concomitant]
     Active Substance: EPHEDRA
  2. VOTRIENT [Suspect]
     Active Substance: PAZOPANIB HYDROCHLORIDE
     Indication: BREAST CANCER FEMALE
     Route: 048
     Dates: start: 20111111
  3. LOMOTIL [Concomitant]
     Active Substance: ATROPINE SULFATE\DIPHENOXYLATE HYDROCHLORIDE
  4. RESPERDAL [Concomitant]
  5. AUGMENTIN [Concomitant]
     Active Substance: AMOXICILLIN\CLAVULANATE POTASSIUM
  6. OXYCODONE [Concomitant]
     Active Substance: OXYCODONE
  7. LOSARTAN. [Concomitant]
     Active Substance: LOSARTAN
  8. MORPHINE [Concomitant]
     Active Substance: MORPHINE
  9. AMLODIPINE [Concomitant]
     Active Substance: AMLODIPINE BESYLATE
  10. TYLENOL [Suspect]
     Active Substance: ACETAMINOPHEN
  11. VITAMIN D3 [Concomitant]
     Active Substance: CHOLECALCIFEROL
  12. FLUOXETINE [Concomitant]
     Active Substance: FLUOXETINE HYDROCHLORIDE
  13. GABAPENTIN. [Concomitant]
     Active Substance: GABAPENTIN
  14. HYDROCHLOROT [Concomitant]
     Active Substance: HYDROCHLOROTHIAZIDE
  15. ISOSORB [Concomitant]
  16. LANTUS [Concomitant]
     Active Substance: INSULIN GLARGINE
  17. PHENERGAN [Concomitant]
     Active Substance: PROMETHAZINE HYDROCHLORIDE
  18. CUBICIN [Concomitant]
     Active Substance: DAPTOMYCIN
  19. FUROSEMIDE. [Concomitant]
     Active Substance: FUROSEMIDE
  20. TUMS [Concomitant]
     Active Substance: CALCIUM CARBONATE
  21. CYMBALTA [Concomitant]
     Active Substance: DULOXETINE HYDROCHLORIDE
  22. HUMALOG, HYDROCHLOROT [Concomitant]
  23. HUMALOG [Concomitant]
     Active Substance: INSULIN LISPRO
  24. HYDROCO/APAP [Concomitant]
     Active Substance: ACETAMINOPHEN\HYDROCODONE
  25. LOPERAMIDE [Concomitant]
     Active Substance: LOPERAMIDE

REACTIONS (1)
  - Pneumonia [None]
